FAERS Safety Report 6866516-3 (Version None)
Quarter: 2010Q2

REPORT INFORMATION
  Report Type: 
  Country: None (occurrence: None)
  Receive Date: 20100601
  Receipt Date: 20100303
  Transmission Date: 20101027
  Serious: Yes (Hospitalization)
  Sender: FDA-Public Use
  Company Number: 2010027496

PATIENT
  Age: 12 Year
  Sex: Male

DRUGS (6)
  1. SOLU-MEDROL (METHYLPREDNISOLONE SODIUM SUCCINATE) POWDER FOR SOLUTION [Suspect]
     Dosage: INTRAVENOUS
     Route: 042
  2. REVLIMID [Suspect]
     Indication: DERMATOMYOSITIS
     Dosage: 5 MG, 1X/DAY, ORAL
     Route: 048
     Dates: start: 20091110
  3. IMMUNOGLOBULIN G HUMAN (IMMUNOGLOBULIN G HUMAN) [Suspect]
     Indication: DRUG USE FOR UNKNOWN INDICATION
  4. FOLIC ACID [Concomitant]
  5. PLAQUENIL [Concomitant]
  6. METHOTREXATE [Concomitant]

REACTIONS (7)
  - BENIGN INTRACRANIAL HYPERTENSION [None]
  - DEHYDRATION [None]
  - HAEMOGLOBIN DECREASED [None]
  - HEADACHE [None]
  - PALLOR [None]
  - RED BLOOD CELL COUNT DECREASED [None]
  - VOMITING [None]
